FAERS Safety Report 16047150 (Version 2)
Quarter: 2019Q1

REPORT INFORMATION
  Report Type: Report from Study
  Country: CO (occurrence: CO)
  Receive Date: 20190307
  Receipt Date: 20190318
  Transmission Date: 20190418
  Serious: Yes (Hospitalization)
  Sender: FDA-Public Use
  Company Number: CO-ELI_LILLY_AND_COMPANY-CO201903000546

PATIENT
  Sex: Female

DRUGS (2)
  1. TERIPARATIDE [Suspect]
     Active Substance: TERIPARATIDE
     Dosage: 20 UG, UNKNOWN
     Route: 058
  2. TERIPARATIDE [Suspect]
     Active Substance: TERIPARATIDE
     Indication: OSTEOPOROSIS
     Dosage: 20 UG, UNKNOWN
     Route: 058
     Dates: start: 20180730, end: 20190221

REACTIONS (7)
  - Pain in extremity [Not Recovered/Not Resolved]
  - Gait inability [Recovered/Resolved]
  - Pain in extremity [Recovered/Resolved]
  - Product dose omission [Unknown]
  - Gastrointestinal viral infection [Recovered/Resolved]
  - Depressed mood [Not Recovered/Not Resolved]
  - Gastrointestinal injury [Not Recovered/Not Resolved]

NARRATIVE: CASE EVENT DATE: 20190216
